FAERS Safety Report 20821213 (Version 1)
Quarter: 2022Q2

REPORT INFORMATION
  Report Type: Spontaneous
  Country: US (occurrence: None)
  Receive Date: 20220512
  Receipt Date: 20220512
  Transmission Date: 20220721
  Serious: Yes (Hospitalization)
  Sender: FDA-Public Use
  Company Number: None

PATIENT
  Age: 29 Year
  Sex: Female
  Weight: 84.15 kg

DRUGS (1)
  1. NARCAN [Suspect]
     Active Substance: NALOXONE HYDROCHLORIDE
     Indication: Overdose
     Dates: start: 20220504, end: 20220504

REACTIONS (6)
  - Feeling of body temperature change [None]
  - Muscle spasms [None]
  - Visual brightness [None]
  - Vision blurred [None]
  - Disorientation [None]
  - Aphasia [None]

NARRATIVE: CASE EVENT DATE: 20220504
